FAERS Safety Report 19450028 (Version 1)
Quarter: 2021Q2

REPORT INFORMATION
  Report Type: Spontaneous
  Country: US (occurrence: US)
  Receive Date: 20210622
  Receipt Date: 20210622
  Transmission Date: 20210717
  Serious: No
  Sender: FDA-Public Use
  Company Number: 2021-06746

PATIENT
  Sex: Female

DRUGS (1)
  1. CHLORHEXIDINE GLUCONATE. [Suspect]
     Active Substance: CHLORHEXIDINE GLUCONATE

REACTIONS (5)
  - Rash [Unknown]
  - Dermatitis allergic [Unknown]
  - Headache [Unknown]
  - Nasal congestion [Unknown]
  - Myalgia [Unknown]

NARRATIVE: CASE EVENT DATE: 20200815
